FAERS Safety Report 23578631 (Version 4)
Quarter: 2024Q2

REPORT INFORMATION
  Report Type: Spontaneous
  Country: CA (occurrence: CA)
  Receive Date: 20240229
  Receipt Date: 20240627
  Transmission Date: 20240716
  Serious: Yes (Other)
  Sender: FDA-Public Use
  Company Number: CA-CELLTRION INC.-2023CA011983

PATIENT

DRUGS (12)
  1. INFLECTRA [Suspect]
     Active Substance: INFLIXIMAB-DYYB
     Indication: Crohn^s disease
     Dosage: 5 MG/KG, INDUCTION WEEK 0 ,2, 6 THEN MAINTENANCE EVERY 8 WEEKS
     Route: 042
     Dates: start: 20230523
  2. INFLECTRA [Suspect]
     Active Substance: INFLIXIMAB-DYYB
     Dosage: 220 MG, WEEK 2 INDUCTION DOSE
     Route: 042
     Dates: start: 20230605
  3. INFLECTRA [Suspect]
     Active Substance: INFLIXIMAB-DYYB
     Dosage: 220 MG, WEEK 2 INDUCTION DOSE
     Route: 042
     Dates: start: 20230605
  4. INFLECTRA [Suspect]
     Active Substance: INFLIXIMAB-DYYB
     Dosage: 220 MG, EVERY 8 WEEKS
     Route: 042
     Dates: start: 20230704
  5. INFLECTRA [Suspect]
     Active Substance: INFLIXIMAB-DYYB
     Dosage: 225 MG, EVERY 8 WEEKS
     Route: 042
     Dates: start: 20230829
  6. INFLECTRA [Suspect]
     Active Substance: INFLIXIMAB-DYYB
     Dosage: 225 MG (5 MG/KG), EVERY 8 WEEKS
     Route: 042
     Dates: start: 20231024
  7. INFLECTRA [Suspect]
     Active Substance: INFLIXIMAB-DYYB
     Dosage: 230 MG (5 MG/KG), EVERY 8 WEEKS
     Route: 042
     Dates: start: 20231219
  8. INFLECTRA [Suspect]
     Active Substance: INFLIXIMAB-DYYB
     Dosage: 225 MG (5 MG/KG), EVERY 8 WEEKS
     Route: 042
     Dates: start: 20240213
  9. INFLECTRA [Suspect]
     Active Substance: INFLIXIMAB-DYYB
     Dosage: 225 MG FOR A TOTAL OF 10 MG/KG (450MG) (225 MG, 6 DAYS)
     Route: 042
     Dates: start: 20240219, end: 20240219
  10. INFLECTRA [Suspect]
     Active Substance: INFLIXIMAB-DYYB
     Dosage: 450 MG (10 MG/KG), AFTER 8 WEEKS
     Route: 042
     Dates: start: 20240415, end: 20240415
  11. PREDNISONE [Concomitant]
     Active Substance: PREDNISONE
     Dosage: 1 DF
     Dates: start: 20230426
  12. SHINGRIX [Concomitant]
     Active Substance: RECOMBINANT VARICELLA ZOSTER VIRUS (VZV) GLYCOPROTEIN E
     Indication: Immunisation
     Dosage: DOSE NUMBER UNKNOWN, SINGLE
     Dates: start: 20230719, end: 20230719

REACTIONS (9)
  - Rectal injury [Not Recovered/Not Resolved]
  - Aphthous ulcer [Not Recovered/Not Resolved]
  - Erythema nodosum [Not Recovered/Not Resolved]
  - Joint swelling [Not Recovered/Not Resolved]
  - Discomfort [Not Recovered/Not Resolved]
  - Arthritis [Unknown]
  - Petechiae [Recovering/Resolving]
  - Arthralgia [Not Recovered/Not Resolved]
  - Condition aggravated [Not Recovered/Not Resolved]

NARRATIVE: CASE EVENT DATE: 20230101
